FAERS Safety Report 24360920 (Version 3)
Quarter: 2024Q4

REPORT INFORMATION
  Report Type: Report from Study
  Country: US (occurrence: US)
  Receive Date: 20240925
  Receipt Date: 20241015
  Transmission Date: 20250115
  Serious: Yes (Hospitalization)
  Sender: GILEAD
  Company Number: US-GILEAD-2024-0686166

PATIENT
  Age: 61 Year
  Sex: Female

DRUGS (7)
  1. AMBRISENTAN [Suspect]
     Active Substance: AMBRISENTAN
     Indication: Pulmonary hypertension
     Dosage: 10 MG, QD
     Route: 065
     Dates: start: 20220606
  2. AMBRISENTAN [Suspect]
     Active Substance: AMBRISENTAN
     Dosage: 10 MG, QD
     Route: 065
     Dates: start: 20240425
  3. ORENITRAM [Suspect]
     Active Substance: TREPROSTINIL
     Indication: Product used for unknown indication
     Dosage: UNK
     Route: 065
  4. ELIQUIS [Concomitant]
     Active Substance: APIXABAN
  5. TADALAFIL [Concomitant]
     Active Substance: TADALAFIL
  6. REMODULIN [Concomitant]
     Active Substance: TREPROSTINIL
  7. XARELTO [Concomitant]
     Active Substance: RIVAROXABAN

REACTIONS (11)
  - Gout [Not Recovered/Not Resolved]
  - Vomiting [Unknown]
  - Headache [Unknown]
  - Dyspnoea [Unknown]
  - Retching [Unknown]
  - Decreased appetite [Unknown]
  - Feeding disorder [Unknown]
  - Productive cough [Unknown]
  - Dizziness [Unknown]
  - Dyspnoea exertional [Unknown]
  - Insomnia [Unknown]

NARRATIVE: CASE EVENT DATE: 20240903
